FAERS Safety Report 9395127 (Version 3)
Quarter: 2013Q4

REPORT INFORMATION
  Report Type: Spontaneous
  Country: US (occurrence: US)
  Receive Date: 20130711
  Receipt Date: 20131024
  Transmission Date: 20140711
  Serious: Yes (Other)
  Sender: FDA-Public Use
  Company Number: US-PFIZER INC-2013202762

PATIENT
  Age: 77 Year
  Sex: Female

DRUGS (3)
  1. XELJANZ [Suspect]
     Indication: RHEUMATOID ARTHRITIS
     Dosage: 5 MG, TWICE A DAY
     Route: 048
     Dates: start: 20130604
  2. CYMBALTA [Concomitant]
     Dosage: UNK
  3. CELEBREX [Concomitant]
     Dosage: UNK

REACTIONS (2)
  - Kidney infection [Not Recovered/Not Resolved]
  - Cystitis [Not Recovered/Not Resolved]
